FAERS Safety Report 5290380-X (Version None)
Quarter: 2007Q2

REPORT INFORMATION
  Report Type: 
  Country: None (occurrence: None)
  Receive Date: 20070409
  Receipt Date: 20070328
  Transmission Date: 20071010
  Serious: Yes (Death, Other)
  Sender: FDA-Public Use
  Company Number: PE-AVENTIS-200712862GDDC

PATIENT

DRUGS (3)
  1. LANTUS [Suspect]
     Dosage: DOSE: UNK
  2. VALSARTAN [Concomitant]
     Dosage: DOSE: UNK
  3. AAS [Concomitant]
     Dosage: DOSE: UNK

REACTIONS (3)
  - DEATH [None]
  - DIARRHOEA [None]
  - HYPOVOLAEMIC SHOCK [None]
